FAERS Safety Report 4554758-1 (Version None)
Quarter: 2005Q1

REPORT INFORMATION
  Report Type: 
  Country: None (occurrence: None)
  Receive Date: 20050118
  Receipt Date: 20040812
  Transmission Date: 20050727
  Serious: Yes (Hospitalization)
  Sender: FDA-Public Use
  Company Number: NO-GLAXOSMITHKLINE-B0342432A

PATIENT
  Age: 82 Year
  Sex: Female

DRUGS (8)
  1. SEROXAT [Suspect]
     Indication: DEPRESSION
     Dosage: 30MG PER DAY
     Route: 048
     Dates: start: 20020101, end: 20040525
  2. APODORM [Concomitant]
     Dosage: 5MG PER DAY
     Route: 048
  3. SOBRIL [Concomitant]
     Dosage: 5MG PER DAY
     Route: 048
  4. SOMAC [Concomitant]
     Dosage: 40MG PER DAY
     Route: 048
  5. LACTULOSE [Concomitant]
     Dosage: 15ML TWICE PER DAY
     Route: 048
  6. ADALAT [Concomitant]
     Dosage: 30MG PER DAY
     Route: 048
  7. HIPREX [Concomitant]
     Dosage: 1G TWICE PER DAY
     Route: 048
  8. ANTIBIOTICS UNSPECIFIED [Concomitant]
     Indication: INFECTION
     Route: 065

REACTIONS (15)
  - ABDOMINAL ABSCESS [None]
  - ANAEMIA [None]
  - ASTHENIA [None]
  - CLOSTRIDIAL INFECTION [None]
  - FALL [None]
  - FEELING ABNORMAL [None]
  - FEELING COLD [None]
  - GASTROINTESTINAL HAEMORRHAGE [None]
  - GASTROINTESTINAL PAIN [None]
  - INFECTED CYST [None]
  - INFECTION [None]
  - PANCREATIC CYST [None]
  - PLEURAL EFFUSION [None]
  - PYREXIA [None]
  - SCAN ABDOMEN ABNORMAL [None]
